FAERS Safety Report 25907819 (Version 2)
Quarter: 2025Q4

REPORT INFORMATION
  Report Type: Spontaneous
  Country: US (occurrence: US)
  Receive Date: 20251010
  Receipt Date: 20251029
  Transmission Date: 20260118
  Serious: No
  Sender: ABBVIE
  Company Number: US-ABBVIE-6488357

PATIENT
  Age: 41 Year
  Sex: Female
  Weight: 68 kg

DRUGS (3)
  1. BOTOX [Suspect]
     Active Substance: ONABOTULINUMTOXINA
     Indication: Headache
     Dosage: TIME INTERVAL: AS NECESSARY: FREQUENCY: EVERY 6 MONTHS
     Route: 030
     Dates: start: 2022, end: 2022
  2. METOPROLOL [Concomitant]
     Active Substance: METOPROLOL
     Indication: Hypertension
  3. DYSPORT [Suspect]
     Active Substance: ABOBOTULINUMTOXINA
     Indication: Headache
     Route: 065

REACTIONS (4)
  - Wrong product administered [Not Recovered/Not Resolved]
  - Headache [Unknown]
  - Injection site bruising [Unknown]
  - Product dispensing error [Unknown]

NARRATIVE: CASE EVENT DATE: 20251001
